FAERS Safety Report 11199214 (Version 1)
Quarter: 2015Q2

REPORT INFORMATION
  Report Type: Spontaneous
  Country: US (occurrence: US)
  Receive Date: 20150618
  Receipt Date: 20150618
  Transmission Date: 20150821
  Serious: No
  Sender: FDA-Public Use
  Company Number: US-PFIZER INC-2015201469

PATIENT
  Age: 60 Year
  Sex: Female
  Weight: 59 kg

DRUGS (4)
  1. SOLU-MEDROL [Suspect]
     Active Substance: METHYLPREDNISOLONE SODIUM SUCCINATE
     Dosage: UNK
  2. PARAFON FORTE [Suspect]
     Active Substance: CHLORZOXAZONE
     Dosage: UNK
  3. CHLORZOXAZONE. [Suspect]
     Active Substance: CHLORZOXAZONE
     Dosage: UNK
  4. PENTOTHAL [Suspect]
     Active Substance: THIOPENTAL SODIUM
     Dosage: UNK

REACTIONS (1)
  - Drug hypersensitivity [Unknown]
